FAERS Safety Report 16724431 (Version 2)
Quarter: 2019Q3

REPORT INFORMATION
  Report Type: Spontaneous
  Country: DE (occurrence: DE)
  Receive Date: 20190821
  Receipt Date: 20190911
  Transmission Date: 20191005
  Serious: Yes (Other)
  Sender: FDA-Public Use
  Company Number: DE-PFIZER INC-2019357878

PATIENT
  Sex: Female
  Weight: 62 kg

DRUGS (2)
  1. IBUPROFEN. [Suspect]
     Active Substance: IBUPROFEN
     Indication: TOOTH REPAIR
     Dosage: 1200 MG, UNK
     Dates: start: 20190714, end: 20190728
  2. IBUPROFEN. [Suspect]
     Active Substance: IBUPROFEN
     Dosage: 400 MG, DAILY
     Route: 048
     Dates: start: 20190714, end: 20190728

REACTIONS (2)
  - Product use issue [Unknown]
  - Angina pectoris [Recovered/Resolved]

NARRATIVE: CASE EVENT DATE: 201907
